FAERS Safety Report 7010709 (Version 3)
Quarter: 2012Q4

REPORT INFORMATION
  Report Type: Report from Study
  Country: GB (occurrence: US)
  Receive Date: 20090604
  Receipt Date: 20121221
  Transmission Date: 20130627
  Serious: Yes (Hospitalization)
  Sender: FDA-Public Use
  Company Number: US-BRISTOL-MYERS SQUIBB COMPANY-14609606

PATIENT
  Age: 58 Year
  Sex: Female
  Weight: 126.98 kg

DRUGS (14)
  1. IXABEPILONE [Suspect]
     Indication: NON-SMALL CELL LUNG CANCER
     Route: 042
     Dates: start: 20090420, end: 20090420
  2. CARBOPLATIN [Suspect]
     Indication: NON-SMALL CELL LUNG CANCER
     Dosage: 1 DF = 6 AUC
     Route: 042
     Dates: start: 20090420, end: 20090420
  3. AVASTIN [Suspect]
     Indication: NON-SMALL CELL LUNG CANCER
     Route: 042
     Dates: start: 20090420, end: 20090420
  4. XANAX [Concomitant]
     Dosage: 1 DF = 0.5(Units not specified)
  5. COMPAZINE [Concomitant]
  6. CELEXA [Concomitant]
  7. RISPERIDONE [Concomitant]
  8. LEVAQUIN [Concomitant]
     Dosage: 250mgx7
  9. COUMADIN [Concomitant]
     Dosage: Nightly
  10. TYLENOL [Concomitant]
     Dosage: 1 DF = 650(Unit not specified)
  11. ZOFRAN [Concomitant]
  12. PROTONIX [Concomitant]
     Dosage: Prior to lunch
  13. DILANTIN [Concomitant]
     Dosage: At dinner
  14. KEPPRA [Concomitant]

REACTIONS (5)
  - Encephalopathy [Recovered/Resolved]
  - Sepsis [Recovered/Resolved]
  - Neutropenia [Recovered/Resolved]
  - Renal failure [Unknown]
  - Dyspnoea [Unknown]
